FAERS Safety Report 18280215 (Version 2)
Quarter: 2020Q3

REPORT INFORMATION
  Report Type: Other
  Country: US (occurrence: US)
  Receive Date: 20200918
  Receipt Date: 20200918
  Transmission Date: 20201103
  Serious: Yes (Other)
  Sender: FDA-Public Use
  Company Number: US-ROCHE-2679582

PATIENT
  Sex: Male

DRUGS (2)
  1. XELODA [Suspect]
     Active Substance: CAPECITABINE
     Dosage: TAKE 4 TABLET(S) BY MOUTH EVERY MORNING AND TAKE 4 TABLET(S) BY MOUTH EVERY?EVENING 2 WEEK(S) ON, 1
     Route: 048
  2. XELODA [Suspect]
     Active Substance: CAPECITABINE
     Indication: METASTASES TO LUNG
     Dosage: TAKE 2 TABLET(S) BY MOUTH EVERY MORNING AND TAKE 2 TABLET(S) BY MOUTH EVERY?EVENING 2 WEEK(S) ON, 1
     Route: 047

REACTIONS (3)
  - Haematochezia [Unknown]
  - Intentional product use issue [Unknown]
  - Off label use [Unknown]
